FAERS Safety Report 6097918-3 (Version None)
Quarter: 2009Q1

REPORT INFORMATION
  Report Type: 
  Country: None (occurrence: None)
  Receive Date: 20090227
  Receipt Date: 20090218
  Transmission Date: 20090719
  Serious: Yes (Life-Threatening)
  Sender: FDA-Public Use
  Company Number: IL-PURDUE-USA_2009_0037167

PATIENT
  Age: 51 Year
  Sex: Female

DRUGS (10)
  1. NON-PMN MORPHINE SULFATE [Suspect]
     Indication: SPINAL ANAESTHESIA
     Dosage: .5 MG, SINGLE
     Route: 037
  2. DIAZEPAM [Concomitant]
     Indication: PREMEDICATION
  3. METOCLOPRAMIDE [Concomitant]
     Indication: PREMEDICATION
  4. PROPOFOL [Concomitant]
     Indication: INDUCTION OF ANAESTHESIA
  5. FENTANYL [Concomitant]
     Indication: INDUCTION OF ANAESTHESIA
  6. VECURONIUM BROMIDE [Concomitant]
     Indication: HYPOTONIA
  7. OXYGEN [Concomitant]
     Indication: MECHANICAL VENTILATION
  8. ISOFLURANE [Concomitant]
     Indication: MAINTENANCE OF ANAESTHESIA
  9. NEOSTIGMINE [Concomitant]
     Indication: NEUROMUSCULAR BLOCKADE REVERSAL
  10. ATROPINE [Concomitant]
     Indication: NEUROMUSCULAR BLOCKADE REVERSAL

REACTIONS (1)
  - REVERSIBLE POSTERIOR LEUKOENCEPHALOPATHY SYNDROME [None]
